FAERS Safety Report 14990799 (Version 1)
Quarter: 2018Q2

REPORT INFORMATION
  Report Type: Spontaneous
  Country: GB (occurrence: GB)
  Receive Date: 20180608
  Receipt Date: 20180608
  Transmission Date: 20180711
  Serious: Yes (Disabling)
  Sender: FDA-Public Use
  Company Number: GB-PFIZER INC-904736

PATIENT
  Age: 74 Year
  Sex: Male

DRUGS (1)
  1. DEFEROXAMINE MESILATE [Suspect]
     Active Substance: DEFEROXAMINE MESYLATE
     Dosage: 1.5 G
     Route: 058

REACTIONS (2)
  - Deafness neurosensory [Unknown]
  - Optic neuropathy [Recovered/Resolved]
